FAERS Safety Report 19645249 (Version 2)
Quarter: 2021Q3

REPORT INFORMATION
  Report Type: Spontaneous
  Country: US (occurrence: US)
  Receive Date: 20210802
  Receipt Date: 20210826
  Transmission Date: 20211014
  Serious: Yes (Death, Hospitalization, Other)
  Sender: FDA-Public Use
  Company Number: US-BRISTOL-MYERS SQUIBB COMPANY-BMS-2021-075157

PATIENT
  Age: 80 Year
  Sex: Female
  Weight: 48.5 kg

DRUGS (5)
  1. ELIQUIS [Suspect]
     Active Substance: APIXABAN
     Indication: THROMBOSIS PROPHYLAXIS
     Dosage: UNK
     Route: 065
  2. REMODULIN [Suspect]
     Active Substance: TREPROSTINIL
     Dosage: UNK
     Route: 041
  3. OPSUMIT [Concomitant]
     Active Substance: MACITENTAN
     Indication: PRODUCT USED FOR UNKNOWN INDICATION
     Dosage: UNK
     Route: 065
  4. SILDENAFIL [SILDENAFIL CITRATE] [Concomitant]
     Active Substance: SILDENAFIL CITRATE
     Indication: PRODUCT USED FOR UNKNOWN INDICATION
     Dosage: UNK
     Route: 065
  5. REMODULIN [Suspect]
     Active Substance: TREPROSTINIL
     Indication: PULMONARY ARTERIAL HYPERTENSION
     Dosage: 0.055 MICROGRAM/KILOGRAM
     Route: 041
     Dates: start: 20190410

REACTIONS (13)
  - Dyspnoea [Unknown]
  - Right ventricular failure [Fatal]
  - Bursitis [Unknown]
  - Tachycardia [Unknown]
  - Pain in extremity [Unknown]
  - Contusion [Unknown]
  - Respiratory failure [Fatal]
  - Oedema [Unknown]
  - Back pain [Unknown]
  - Exercise tolerance decreased [Unknown]
  - Tremor [Unknown]
  - Hypotension [Unknown]
  - Nasal congestion [Unknown]

NARRATIVE: CASE EVENT DATE: 20210728
